FAERS Safety Report 23710018 (Version 2)
Quarter: 2024Q2

REPORT INFORMATION
  Report Type: Spontaneous
  Country: PL (occurrence: PL)
  Receive Date: 20240405
  Receipt Date: 20240421
  Transmission Date: 20240715
  Serious: Yes (Hospitalization, Other)
  Sender: FDA-Public Use
  Company Number: PL-AUROBINDO-AUR-APL-2024-014670

PATIENT
  Age: 41 Year
  Sex: Female

DRUGS (18)
  1. PREGABALIN [Suspect]
     Active Substance: PREGABALIN
     Indication: Pain
     Dosage: 300 MILLIGRAM, TWO TIMES A DAY
     Route: 065
     Dates: start: 201701
  2. PREGABALIN [Suspect]
     Active Substance: PREGABALIN
     Indication: Neuralgia
     Dosage: 300 MILLIGRAM, TWO TIMES A DAY
     Route: 065
     Dates: start: 201701
  3. GABAPENTIN [Suspect]
     Active Substance: GABAPENTIN
     Indication: Pain
     Dosage: 600 MILLIGRAM, 3 TIMES A DAY
     Route: 065
     Dates: start: 201701, end: 201704
  4. GABAPENTIN [Suspect]
     Active Substance: GABAPENTIN
     Indication: Neuralgia
     Dosage: 900 MILLIGRAM, 3 TIMES A DAY (INCREASED)
     Route: 065
     Dates: start: 201704
  5. ACETAMINOPHEN [Suspect]
     Active Substance: ACETAMINOPHEN
     Indication: Pain
     Dosage: 500 MILLIGRAM, 3 TIMES A DAY
     Route: 065
     Dates: start: 201701
  6. ACETAMINOPHEN [Suspect]
     Active Substance: ACETAMINOPHEN
     Indication: Neuralgia
  7. DULOXETINE [Suspect]
     Active Substance: DULOXETINE
     Indication: Pain
     Dosage: 60 MILLIGRAM
     Route: 065
  8. FENTANYL [Suspect]
     Active Substance: FENTANYL\FENTANYL CITRATE
     Indication: Pain
     Dosage: 200 MICROGRAM
  9. CLONAZEPAM [Suspect]
     Active Substance: CLONAZEPAM
     Indication: Pain
     Dosage: 0.5?1 MG
     Route: 065
  10. MORPHINE [Suspect]
     Active Substance: MORPHINE
     Indication: Pain
     Dosage: ? OR 1 TABLET IN CASE OF PAIN
     Route: 065
     Dates: start: 201701
  11. MORPHINE [Suspect]
     Active Substance: MORPHINE
     Indication: Neuralgia
  12. METHADONE [Suspect]
     Active Substance: METHADONE HYDROCHLORIDE
     Indication: Product used for unknown indication
     Dosage: UNK30 ML + 30 ML + 40 ML
     Route: 065
  13. DIHYDROCODEINE [Concomitant]
     Active Substance: DIHYDROCODEINE
     Indication: Pain
     Dosage: 120 MILLIGRAM, TWO TIMES A DAY
     Route: 065
     Dates: start: 201701
  14. DIHYDROCODEINE [Concomitant]
     Active Substance: DIHYDROCODEINE
     Indication: Neuralgia
  15. MORPHINE [Concomitant]
     Active Substance: MORPHINE
     Indication: Pain
     Dosage: 180 MILLIGRAM, DAILY
     Route: 058
  16. NALOXONE HYDROCHLORIDE\OXYCODONE HYDROCHLORIDE [Concomitant]
     Active Substance: NALOXONE HYDROCHLORIDE\OXYCODONE HYDROCHLORIDE
     Indication: Pain
     Dosage: 2?20/10 MG
     Route: 065
  17. VEPESID [Concomitant]
     Active Substance: ETOPOSIDE
     Indication: Neurofibrosarcoma
     Dosage: 150 MILLIGRAM
     Route: 065
     Dates: start: 201612
  18. IFOSFAMIDE [Concomitant]
     Active Substance: IFOSFAMIDE
     Indication: Neurofibrosarcoma
     Dosage: 2.5 MILLIGRAM (DAY 1-5 ) IN A CYCLE EVERY 21 DAYS
     Route: 065
     Dates: start: 201612

REACTIONS (6)
  - Chronic kidney disease [Unknown]
  - Sepsis [Unknown]
  - Anaemia [Unknown]
  - Disease progression [Unknown]
  - Therapeutic product effect incomplete [Unknown]
  - Wrong technique in product usage process [Unknown]

NARRATIVE: CASE EVENT DATE: 20170101
